FAERS Safety Report 25750339 (Version 1)
Quarter: 2025Q3

REPORT INFORMATION
  Report Type: Report from Study
  Country: GB (occurrence: GB)
  Receive Date: 20250902
  Receipt Date: 20250902
  Transmission Date: 20251021
  Serious: Yes (Other)
  Sender: MYLAN
  Company Number: GB-MYLANLABS-2025M1074278

PATIENT
  Age: 61 Year
  Sex: Female

DRUGS (6)
  1. GABAPENTIN [Suspect]
     Active Substance: GABAPENTIN
     Indication: Fibromyalgia
  2. GABAPENTIN [Suspect]
     Active Substance: GABAPENTIN
     Indication: Arthritis
     Route: 065
  3. GABAPENTIN [Suspect]
     Active Substance: GABAPENTIN
     Indication: Epicondylitis
     Route: 065
  4. GABAPENTIN [Suspect]
     Active Substance: GABAPENTIN
     Indication: Tenoplasty
  5. GABAPENTIN [Suspect]
     Active Substance: GABAPENTIN
     Indication: Osteotomy
  6. GABAPENTIN [Suspect]
     Active Substance: GABAPENTIN
     Indication: Cyst rupture

REACTIONS (10)
  - Intestinal obstruction [Unknown]
  - Abdominal distension [Unknown]
  - Bowel movement irregularity [Unknown]
  - Faeces hard [Unknown]
  - Dyschezia [Unknown]
  - Pain [Unknown]
  - Pruritus [Unknown]
  - Constipation [Unknown]
  - Nausea [Unknown]
  - Somnolence [Unknown]
